FAERS Safety Report 4405814-X (Version None)
Quarter: 2004Q3

REPORT INFORMATION
  Report Type: 
  Country: None (occurrence: None)
  Receive Date: 20040723
  Receipt Date: 20031230
  Transmission Date: 20050211
  Serious: No
  Sender: FDA-Public Use
  Company Number: US-GLAXOSMITHKLINE-A0490855A

PATIENT
  Age: 52 Year
  Sex: Female
  Weight: 63.6 kg

DRUGS (1)
  1. AVANDIA [Suspect]
     Dosage: 4MG UNKNOWN
     Route: 048
     Dates: start: 20030728

REACTIONS (1)
  - OVARIAN CYST [None]
